FAERS Safety Report 9178697 (Version 1)
Quarter: 2013Q1

REPORT INFORMATION
  Report Type: Spontaneous
  Country: FR (occurrence: FR)
  Receive Date: 20130321
  Receipt Date: 20130321
  Transmission Date: 20140127
  Serious: Yes (Hospitalization)
  Sender: FDA-Public Use
  Company Number: FR-BAYER-2013-032784

PATIENT
  Age: 23 Year
  Sex: Female

DRUGS (1)
  1. JASMINE [Suspect]
     Indication: CONTRACEPTION
     Route: 048

REACTIONS (3)
  - Ischaemic stroke [Recovered/Resolved with Sequelae]
  - Hemiparesis [Recovered/Resolved with Sequelae]
  - Cluttering [Recovered/Resolved]
